FAERS Safety Report 24066602 (Version 2)
Quarter: 2024Q3

REPORT INFORMATION
  Report Type: Spontaneous
  Country: RU (occurrence: RU)
  Receive Date: 20240709
  Receipt Date: 20240709
  Transmission Date: 20241017
  Serious: Yes (Other)
  Sender: ROCHE
  Company Number: RU-ROCHE-10000010134

PATIENT
  Sex: Female
  Weight: 83 kg

DRUGS (2)
  1. ATEZOLIZUMAB [Suspect]
     Active Substance: ATEZOLIZUMAB
     Indication: Hepatocellular carcinoma
     Dosage: DAY 1, FROM 29/JUN/2023-CYCLE 17, 24/JUL/2023-CYCLE 18, 23/AUG/2023-CYCLE 19, 13/SEP/2023-CYCLE 20,
     Route: 065
  2. BEVACIZUMAB [Suspect]
     Active Substance: BEVACIZUMAB
     Indication: Hepatocellular carcinoma
     Dosage: DAY 1, FROM 29/JUN/2023-CYCLE 17, 24/JUL/2023-CYCLE 18, 23/AUG/2023-CYCLE 19, 13/SEP/2023-CYCLE 20,
     Route: 042

REACTIONS (4)
  - Thrombocytopenia [Unknown]
  - Hypothyroidism [Unknown]
  - Pain [Unknown]
  - Osteoarthritis [Unknown]
